FAERS Safety Report 16352199 (Version 1)
Quarter: 2019Q3

REPORT INFORMATION
  Report Type: Spontaneous
  Country: GB (occurrence: GB)
  Receive Date: 20190523
  Receipt Date: 20190523
  Transmission Date: 20191004
  Serious: Yes (Disabling)
  Sender: FDA-Public Use
  Company Number: None

PATIENT
  Age: 2 Year
  Sex: Male

DRUGS (1)
  1. SINGULAIR [Suspect]
     Active Substance: MONTELUKAST SODIUM
     Indication: ASTHMA
     Dosage: ?          QUANTITY:1 POWDER/ SACHET;?
     Route: 048
     Dates: start: 20130105, end: 20151205

REACTIONS (8)
  - Reaction to colouring [None]
  - Hallucination [None]
  - Pain in extremity [None]
  - Sleep terror [None]
  - Abdominal pain upper [None]
  - Disturbance in attention [None]
  - Hyperhidrosis [None]
  - Aggression [None]

NARRATIVE: CASE EVENT DATE: 20131111
